FAERS Safety Report 10439605 (Version 1)
Quarter: 2014Q3

REPORT INFORMATION
  Report Type: Spontaneous
  Country: US (occurrence: US)
  Receive Date: 20140908
  Receipt Date: 20140908
  Transmission Date: 20150326
  Serious: Yes (Hospitalization)
  Sender: FDA-Public Use
  Company Number: US-BRISTOL-MYERS SQUIBB COMPANY-20635223

PATIENT
  Age: 56 Year
  Sex: Female

DRUGS (2)
  1. PAXIL [Suspect]
     Active Substance: PAROXETINE HYDROCHLORIDE
  2. ABILIFY [Suspect]
     Active Substance: ARIPIPRAZOLE
     Indication: DEPRESSION

REACTIONS (6)
  - Muscle spasms [Unknown]
  - Weight increased [Unknown]
  - Memory impairment [Unknown]
  - Adverse event [Unknown]
  - Malaise [Unknown]
  - Hiatus hernia [Unknown]
